FAERS Safety Report 5299053-0 (Version None)
Quarter: 2007Q2

REPORT INFORMATION
  Report Type: 
  Country: None (occurrence: None)
  Receive Date: 20070417
  Receipt Date: 20070412
  Transmission Date: 20071010
  Serious: Yes (Death, Life-Threatening)
  Sender: FDA-Public Use
  Company Number: US-GLAXOSMITHKLINE-A0632054A

PATIENT
  Age: 17 Year
  Sex: Female
  Weight: 59.5 kg

DRUGS (3)
  1. PAROXETINE [Suspect]
     Indication: ANXIETY
     Dosage: 20MG PER DAY
     Route: 048
     Dates: start: 20040108
  2. FENTANYL [Suspect]
     Route: 062
  3. SULFAMETHOXAZOLE [Concomitant]

REACTIONS (14)
  - AGGRESSION [None]
  - AGITATION [None]
  - ANXIETY [None]
  - BRAIN OEDEMA [None]
  - COMPLETED SUICIDE [None]
  - DEPRESSION [None]
  - DRUG TOXICITY [None]
  - HOSTILITY [None]
  - IMPULSIVE BEHAVIOUR [None]
  - IRRITABILITY [None]
  - OVERDOSE [None]
  - PULMONARY CONGESTION [None]
  - PULMONARY OEDEMA [None]
  - SUICIDAL IDEATION [None]
